FAERS Safety Report 4640626-3 (Version None)
Quarter: 2005Q2

REPORT INFORMATION
  Report Type: 
  Country: None (occurrence: None)
  Receive Date: 20050419
  Receipt Date: 20050418
  Transmission Date: 20051028
  Serious: Yes (Disabling)
  Sender: FDA-Public Use
  Company Number: 2005054466

PATIENT
  Age: 35 Year
  Sex: Male

DRUGS (13)
  1. SILDENAFIL           (SILDENAFIL) [Suspect]
     Indication: PULMONARY HYPERTENSION
     Dosage: 120 MG (40 MG, 3 IN 1 D), ORAL
     Route: 048
     Dates: start: 20031023, end: 20051209
  2. FUROSEMIDE [Concomitant]
  3. FLUINDIONE (FLUINDIONE) [Concomitant]
  4. POTASSIUM CHLORIDE [Concomitant]
  5. SERTRALINE              (SERTRALINE) [Concomitant]
  6. ALPRAZOLAM [Concomitant]
  7. FLUINDIONE (FLUINDIONE) [Concomitant]
  8. ENOXAPARIN SODIUM [Concomitant]
  9. ZOLPIDEM TARTRATE [Concomitant]
  10. CARBIMAZOLE (CARBIMAZOLE) [Concomitant]
  11. PHYTONADIONE [Concomitant]
  12. LIDOCAINE HYDROCHLORIDE [Concomitant]
  13. EPOPROSTENOL (EPOPROSTENOL) [Concomitant]

REACTIONS (2)
  - ASCITES [None]
  - RIGHT VENTRICULAR FAILURE [None]
